FAERS Safety Report 4757267-X (Version None)
Quarter: 2005Q3

REPORT INFORMATION
  Report Type: 
  Country: None (occurrence: None)
  Receive Date: 20050826
  Receipt Date: 20050816
  Transmission Date: 20060218
  Serious: Yes (Death, Hospitalization)
  Sender: FDA-Public Use
  Company Number: 2005JP001610

PATIENT
  Age: 34 Year
  Sex: Male

DRUGS (3)
  1. PROGRAF [Suspect]
     Indication: LIVER TRANSPLANT
  2. MYCOPHENOLATE MOFETIL (MYCOPHENOLATE MOFETIL) [Suspect]
     Dosage: 3000.00 MG, /D
  3. METHYLPREDNISOLONE (METHYLPREDNISOLONE) [Suspect]
     Dosage: 20.00 MG, /D

REACTIONS (12)
  - BILIARY DILATATION [None]
  - CYTOMEGALOVIRUS TEST POSITIVE [None]
  - HEPATIC ENZYME INCREASED [None]
  - HEPATIC FUNCTION ABNORMAL [None]
  - INTESTINAL OBSTRUCTION [None]
  - LARGE INTESTINAL ULCER [None]
  - LIVER TRANSPLANT REJECTION [None]
  - LYMPHOPROLIFERATIVE DISORDER [None]
  - MELAENA [None]
  - MULTI-ORGAN FAILURE [None]
  - PYREXIA [None]
  - THERAPY NON-RESPONDER [None]
